APPROVED DRUG PRODUCT: OXCARBAZEPINE
Active Ingredient: OXCARBAZEPINE
Strength: 600MG
Dosage Form/Route: TABLET;ORAL
Application: A215939 | Product #003 | TE Code: AB
Applicant: ANNORA PHARMA PRIVATE LTD
Approved: Jan 11, 2022 | RLD: No | RS: No | Type: RX